FAERS Safety Report 23720165 (Version 1)
Quarter: 2024Q2

REPORT INFORMATION
  Report Type: Spontaneous
  Country: US (occurrence: US)
  Receive Date: 20240408
  Receipt Date: 20240408
  Transmission Date: 20240716
  Serious: Yes (Hospitalization, Other)
  Sender: FDA-Public Use
  Company Number: US-BoehringerIngelheim-2024-BI-020432

PATIENT
  Age: 79 Year
  Sex: Male

DRUGS (1)
  1. OFEV [Suspect]
     Active Substance: NINTEDANIB
     Indication: Idiopathic pulmonary fibrosis
     Route: 048
     Dates: start: 202103

REACTIONS (7)
  - Liver function test increased [Recovered/Resolved]
  - Pancreatitis [Recovered/Resolved]
  - Cholelithiasis [Recovered/Resolved]
  - Pancreatic duct obstruction [Recovered/Resolved]
  - Coronary artery occlusion [Not Recovered/Not Resolved]
  - Bradycardia [Recovered/Resolved]
  - Computerised tomogram heart abnormal [Not Recovered/Not Resolved]

NARRATIVE: CASE EVENT DATE: 20231101
